FAERS Safety Report 5088139-1 (Version None)
Quarter: 2006Q3

REPORT INFORMATION
  Report Type: 
  Country: None (occurrence: None)
  Receive Date: 20060823
  Receipt Date: 20060823
  Transmission Date: 20061208
  Serious: Yes (Other)
  Sender: FDA-Public Use
  Company Number: None

PATIENT
  Age: 56 Year
  Sex: Male
  Weight: 74.8435 kg

DRUGS (1)
  1. POLYETHYLENE GLYCOL 3350 [Suspect]
     Indication: CONSTIPATION
     Dosage: MIX AND DRINK TWICE A DAY AS DIRECTED
     Dates: start: 20060808

REACTIONS (3)
  - DIARRHOEA [None]
  - DYSGEUSIA [None]
  - PHARMACEUTICAL PRODUCT COMPLAINT [None]
